FAERS Safety Report 7327396-5 (Version None)
Quarter: 2011Q1

REPORT INFORMATION
  Report Type: 
  Country: None (occurrence: None)
  Receive Date: 20110302
  Receipt Date: 20110221
  Transmission Date: 20110831
  Serious: Yes (Other)
  Sender: FDA-Public Use
  Company Number: US-BAYER-2011-017673

PATIENT
  Sex: Male

DRUGS (10)
  1. MAGNEVIST [Suspect]
     Indication: ANGIOGRAM
  2. OPTIMARK [Suspect]
     Indication: NUCLEAR MAGNETIC RESONANCE IMAGING
  3. PROHANCE [Suspect]
     Indication: NUCLEAR MAGNETIC RESONANCE IMAGING
  4. OMNISCAN [Suspect]
     Indication: NUCLEAR MAGNETIC RESONANCE IMAGING
  5. MULTIHANCE [Suspect]
     Indication: ANGIOGRAM
  6. OPTIMARK [Suspect]
     Indication: ANGIOGRAM
  7. MULTIHANCE [Suspect]
     Indication: NUCLEAR MAGNETIC RESONANCE IMAGING
  8. PROHANCE [Suspect]
     Indication: ANGIOGRAM
  9. MAGNEVIST [Suspect]
     Indication: NUCLEAR MAGNETIC RESONANCE IMAGING
  10. OMNISCAN [Suspect]
     Indication: ANGIOGRAM

REACTIONS (2)
  - NEPHROGENIC SYSTEMIC FIBROSIS [None]
  - PAIN [None]
